FAERS Safety Report 16409112 (Version 1)
Quarter: 2019Q2

REPORT INFORMATION
  Report Type: Spontaneous
  Country: US (occurrence: US)
  Receive Date: 20190610
  Receipt Date: 20190610
  Transmission Date: 20190711
  Serious: No
  Sender: FDA-Public Use
  Company Number: US-TEVA-2019-US-1052760

PATIENT
  Age: 34 Year
  Sex: Female

DRUGS (3)
  1. POTASSIUM PHOSPHATE [Suspect]
     Active Substance: POTASSIUM PHOSPHATE
     Indication: HYPOPHOSPHATAEMIC OSTEOMALACIA
     Dosage: INITIAL DOSAGE UNKNOWN; TITRATED TO 1500MG THREE TIMES A DAY
     Route: 048
  2. CALCITRIOL. [Suspect]
     Active Substance: CALCITRIOL
     Route: 065
  3. POTASSIUM PHOSPHATE [Suspect]
     Active Substance: POTASSIUM PHOSPHATE
     Indication: HYPERCALCIURIA
     Dosage: 4500 MILLIGRAM DAILY; 1500MG THREE TIMES A DAY
     Route: 048

REACTIONS (1)
  - Maternal exposure during pregnancy [Unknown]
